FAERS Safety Report 18228557 (Version 12)
Quarter: 2022Q2

REPORT INFORMATION
  Report Type: Spontaneous
  Country: IN (occurrence: IN)
  Receive Date: 20200903
  Receipt Date: 20220630
  Transmission Date: 20220720
  Serious: Yes (Death, Other)
  Sender: FDA-Public Use
  Company Number: IN-PFIZER INC-2019342257

PATIENT
  Age: 79 Year
  Sex: Female

DRUGS (19)
  1. PALBOCICLIB [Suspect]
     Active Substance: PALBOCICLIB
     Indication: Breast cancer metastatic
     Dosage: 100 MG
     Dates: start: 201907
  2. PALBOCICLIB [Suspect]
     Active Substance: PALBOCICLIB
     Dosage: 100 MG, 1X/DAY
     Route: 048
     Dates: start: 20190807
  3. PALBOCICLIB [Suspect]
     Active Substance: PALBOCICLIB
     Dosage: 100 MG, 1X/DAY
     Route: 048
     Dates: start: 20190808
  4. PALBOCICLIB [Suspect]
     Active Substance: PALBOCICLIB
     Dosage: 100 MG, 1X/DAY (CYCLE 2)
     Route: 048
     Dates: start: 20200623, end: 20200713
  5. PALBOCICLIB [Suspect]
     Active Substance: PALBOCICLIB
     Dosage: 100 MG, 1X/DAY (14TH CYCLE)
     Route: 048
     Dates: start: 20201016, end: 20201103
  6. PALBOCICLIB [Suspect]
     Active Substance: PALBOCICLIB
     Dosage: 100 MG, 1X/DAY (0-0-1)
     Route: 048
     Dates: start: 20201113, end: 20201130
  7. PALBOCICLIB [Suspect]
     Active Substance: PALBOCICLIB
     Dosage: 100 MG, 1X/DAY (0-0-1)
     Route: 048
     Dates: start: 20210120, end: 20210209
  8. PALBOCICLIB [Suspect]
     Active Substance: PALBOCICLIB
     Dosage: 100 MG, 1X/DAY (0-0-1)
     Route: 048
     Dates: start: 20210225
  9. PALBOCICLIB [Suspect]
     Active Substance: PALBOCICLIB
     Dosage: UNK
     Dates: end: 20220503
  10. LETROZOLE [Concomitant]
     Active Substance: LETROZOLE
     Dosage: 2.5 MG, 1X/DAY (0-0-1)
  11. DOMPERIDONE\PANTOPRAZOLE SODIUM [Concomitant]
     Active Substance: DOMPERIDONE\PANTOPRAZOLE SODIUM
     Dosage: 1 DF, 1X/DAY (1-0-0)
  12. DOMPERIDONE\PANTOPRAZOLE SODIUM [Concomitant]
     Active Substance: DOMPERIDONE\PANTOPRAZOLE SODIUM
     Dosage: 1 DF, ALTERNATE DAY (1-0-0 ONCE IN 2 DAYS)
  13. CCM [Concomitant]
     Dosage: 1 DF, ALTERNATE DAY (0-1-0 (ALT DAY)
  14. CCM [Concomitant]
     Dosage: 1 DF, 1X/DAY
  15. CCM [Concomitant]
     Dosage: UNK, ALTERNATE DAY(0-0-1 ONCE IN 2 DAYS)
  16. FERROUS ASCORBATE\FOLIC ACID [Concomitant]
     Active Substance: FERROUS ASCORBATE\FOLIC ACID
     Dosage: 1 DF, 1X/DAY (0-0-1)
  17. ACETAMINOPHEN\TRAMADOL HYDROCHLORIDE [Concomitant]
     Active Substance: ACETAMINOPHEN\TRAMADOL HYDROCHLORIDE
     Indication: Pain
     Dosage: 1 DF
  18. ACETAMINOPHEN\TRAMADOL HYDROCHLORIDE [Concomitant]
     Active Substance: ACETAMINOPHEN\TRAMADOL HYDROCHLORIDE
     Dosage: 20 DF, AS NEEDED
  19. MINERALS\VITAMINS [Concomitant]
     Active Substance: MINERALS\VITAMINS
     Dosage: UNK, DAILY (0-1-0)

REACTIONS (15)
  - Death [Fatal]
  - Blood cholesterol increased [Unknown]
  - Neutrophil percentage decreased [Unknown]
  - Abdominal discomfort [Recovered/Resolved]
  - Dizziness [Recovered/Resolved]
  - Lymphocyte percentage increased [Unknown]
  - Platelet count decreased [Unknown]
  - Haemoglobin decreased [Unknown]
  - Blood creatinine increased [Unknown]
  - Back pain [Unknown]
  - Low density lipoprotein increased [Unknown]
  - Dyspnoea exertional [Unknown]
  - Arthralgia [Unknown]
  - Asthenia [Unknown]
  - Back pain [Unknown]

NARRATIVE: CASE EVENT DATE: 20200818
